FAERS Safety Report 19563873 (Version 1)
Quarter: 2021Q3

REPORT INFORMATION
  Report Type: Spontaneous
  Country: FR (occurrence: FR)
  Receive Date: 20210714
  Receipt Date: 20210714
  Transmission Date: 20211014
  Serious: Yes (Other)
  Sender: FDA-Public Use
  Company Number: FR-JNJFOC-20210727983

PATIENT
  Age: 40 Year
  Sex: Female

DRUGS (1)
  1. TRAMADOL HYDROCHLORIDE. [Suspect]
     Active Substance: TRAMADOL HYDROCHLORIDE
     Indication: BLADDER PAIN
     Dosage: 50 MILLIGRAM, 1/HR
     Route: 065

REACTIONS (5)
  - Drug dependence [Unknown]
  - Hyperaesthesia [Unknown]
  - Withdrawal syndrome [Unknown]
  - Intentional product misuse [Unknown]
  - Intentional overdose [Unknown]
